FAERS Safety Report 9562180 (Version 1)
Quarter: 2013Q3

REPORT INFORMATION
  Report Type: Spontaneous
  Country: US (occurrence: US)
  Receive Date: 20130927
  Receipt Date: 20130927
  Transmission Date: 20140515
  Serious: No
  Sender: FDA-Public Use
  Company Number: US-BAYER-2013-116665

PATIENT
  Age: 80 Year
  Sex: Female
  Weight: 59 kg

DRUGS (1)
  1. ALEVE CAPLET [Suspect]
     Indication: BACK PAIN
     Dosage: 1 DF, PRN
     Route: 048

REACTIONS (5)
  - Increased upper airway secretion [Recovered/Resolved]
  - Throat tightness [Not Recovered/Not Resolved]
  - Nausea [Not Recovered/Not Resolved]
  - Drug ineffective [None]
  - Insomnia [Not Recovered/Not Resolved]
